FAERS Safety Report 16429223 (Version 1)
Quarter: 2019Q2

REPORT INFORMATION
  Report Type: Report from Study
  Country: None (occurrence: BR)
  Receive Date: 20190614
  Receipt Date: 20190614
  Transmission Date: 20190711
  Serious: Yes (Other)
  Sender: FDA-Public Use
  Company Number: BR-ABBVIE-18K-020-2433054-00

PATIENT
  Age: 44 Year
  Sex: Male
  Weight: 90 kg

DRUGS (5)
  1. TRAMAL [Concomitant]
     Active Substance: TRAMADOL
     Indication: PAIN
  2. METHOTREXATE. [Concomitant]
     Active Substance: METHOTREXATE
     Indication: ANKYLOSING SPONDYLITIS
     Dates: start: 2017
  3. HUMIRA [Suspect]
     Active Substance: ADALIMUMAB
     Route: 058
     Dates: start: 2017
  4. TRAMADOL HYDROCHLORIDE. [Concomitant]
     Active Substance: TRAMADOL HYDROCHLORIDE
     Indication: PRODUCT USED FOR UNKNOWN INDICATION
  5. HUMIRA [Suspect]
     Active Substance: ADALIMUMAB
     Indication: ANKYLOSING SPONDYLITIS
     Route: 058
     Dates: start: 20171003, end: 2017

REACTIONS (7)
  - Skin cancer [Recovered/Resolved]
  - Brain neoplasm [Recovering/Resolving]
  - Pain [Recovering/Resolving]
  - Pain [Unknown]
  - Swelling [Unknown]
  - Nodule [Unknown]
  - Hypertension [Not Recovered/Not Resolved]

NARRATIVE: CASE EVENT DATE: 20171003
